FAERS Safety Report 8953153 (Version 4)
Quarter: 2013Q1

REPORT INFORMATION
  Report Type: Spontaneous
  Country: FR (occurrence: FR)
  Receive Date: 20121205
  Receipt Date: 20130123
  Transmission Date: 20140127
  Serious: Yes (Hospitalization, Other)
  Sender: FDA-Public Use
  Company Number: FR-AMGEN-FRASP2012077628

PATIENT
  Age: 77 Year
  Sex: Male
  Weight: 75 kg

DRUGS (5)
  1. NEULASTA [Suspect]
     Indication: ACUTE PULMONARY OEDEMA
     Dosage: UNK
     Route: 058
     Dates: start: 20120822
  2. DOCETAXEL [Concomitant]
     Dosage: UNK
  3. LEUCOVORIN /00566701/ [Concomitant]
     Dosage: UNK
  4. FLUOROURACIL [Concomitant]
     Dosage: UNK
  5. IRINOTECAN [Concomitant]
     Dosage: UNK

REACTIONS (12)
  - Acute pulmonary oedema [Recovered/Resolved with Sequelae]
  - Oedema peripheral [Recovered/Resolved with Sequelae]
  - Ascites [Recovered/Resolved with Sequelae]
  - Face oedema [Recovered/Resolved with Sequelae]
  - Dyspnoea [Recovered/Resolved with Sequelae]
  - Pulmonary toxicity [Recovered/Resolved]
  - Cardiac failure [Recovered/Resolved]
  - Lung disorder [Unknown]
  - Pharyngeal oedema [Unknown]
  - Diabetes mellitus [Unknown]
  - Hypertension [Unknown]
  - Hypercholesterolaemia [Unknown]
